FAERS Safety Report 5626719-2 (Version None)
Quarter: 2008Q1

REPORT INFORMATION
  Report Type: 
  Country: None (occurrence: None)
  Receive Date: 20080214
  Receipt Date: 20080207
  Transmission Date: 20080703
  Serious: Yes (Other)
  Sender: FDA-Public Use
  Company Number: PT-PFIZER INC-2008001848

PATIENT
  Sex: Male
  Weight: 78 kg

DRUGS (2)
  1. ZARATOR [Suspect]
     Indication: CEREBROVASCULAR ACCIDENT PROPHYLAXIS
     Route: 048
     Dates: start: 20070307, end: 20070530
  2. LOSARTAN POTASSIUM [Concomitant]
     Route: 048

REACTIONS (2)
  - ECCHYMOSIS [None]
  - SPONTANEOUS HAEMATOMA [None]
